FAERS Safety Report 10430286 (Version 1)
Quarter: 2014Q3

REPORT INFORMATION
  Report Type: Spontaneous
  Country: US (occurrence: None)
  Receive Date: 20140808
  Receipt Date: 20140808
  Transmission Date: 20150326
  Serious: No
  Sender: FDA-Public Use
  Company Number: US-016116

PATIENT
  Age: 78 Year
  Sex: Female
  Weight: 69.85 kg

DRUGS (4)
  1. SYNTHROID (TO CONTINUING) [Concomitant]
  2. ZOLOFT (TO CONTINUING) [Concomitant]
  3. LITHIUM (TO CONTINUING) [Concomitant]
  4. PREPOPIK [Suspect]
     Active Substance: ANHYDROUS CITRIC ACID\MAGNESIUM OXIDE\SODIUM PICOSULFATE
     Indication: BOWEL PREPARATION
     Route: 048
     Dates: start: 20140622, end: 20140622

REACTIONS (1)
  - Drug ineffective [None]

NARRATIVE: CASE EVENT DATE: 20140622
